FAERS Safety Report 8023878-1 (Version None)
Quarter: 2012Q1

REPORT INFORMATION
  Report Type: 
  Country: None (occurrence: None)
  Receive Date: 20120105
  Receipt Date: 20120103
  Transmission Date: 20120608
  Serious: No
  Sender: FDA-Public Use
  Company Number: US-PFIZER INC-2012001169

PATIENT
  Sex: Female

DRUGS (2)
  1. PREMARIN [Suspect]
     Dosage: UNK
  2. ESTRADERM [Suspect]
     Dosage: UNK

REACTIONS (3)
  - NIGHT SWEATS [None]
  - MOOD ALTERED [None]
  - DRUG INEFFECTIVE [None]
